FAERS Safety Report 4530939-8 (Version None)
Quarter: 2004Q4

REPORT INFORMATION
  Report Type: 
  Country: None (occurrence: None)
  Receive Date: 20041215
  Receipt Date: 20041203
  Transmission Date: 20050328
  Serious: Yes (Hospitalization)
  Sender: FDA-Public Use
  Company Number: 2004-03868

PATIENT
  Age: 74 Year
  Sex: Male

DRUGS (1)
  1. IMMUCYST (BCG - IT (CONNAUGHT)), AVENTIS PASTEUR LTD. [Suspect]
     Indication: BLADDER CANCER
     Dosage: 81.0 MG (81.0 MG)
     Route: 043

REACTIONS (12)
  - ALANINE AMINOTRANSFERASE INCREASED [None]
  - BLOOD ALKALINE PHOSPHATASE INCREASED [None]
  - BOVINE TUBERCULOSIS [None]
  - CHRONIC OBSTRUCTIVE AIRWAYS DISEASE [None]
  - DIVERTICULUM INTESTINAL [None]
  - MALAISE [None]
  - NAUSEA [None]
  - PANCREATIC CYST [None]
  - PANCREATIC DISORDER [None]
  - PANCREATITIS [None]
  - RENAL CYST [None]
  - WEIGHT DECREASED [None]
